FAERS Safety Report 17242988 (Version 1)
Quarter: 2020Q1

REPORT INFORMATION
  Report Type: Spontaneous
  Country: CN (occurrence: CN)
  Receive Date: 20200107
  Receipt Date: 20200107
  Transmission Date: 20200409
  Serious: Yes (Other)
  Sender: FDA-Public Use
  Company Number: CN-HONG KONG KING-FRIEND INDUSTRIAL COMPANY-2019NKF00047

PATIENT
  Age: 66 Year
  Sex: Male

DRUGS (1)
  1. HEPARIN SODIUM. [Suspect]
     Active Substance: HEPARIN SODIUM
     Route: 065

REACTIONS (5)
  - Heparin-induced thrombocytopenia [Recovered/Resolved]
  - Venous thrombosis limb [Recovered/Resolved]
  - Haematoma [Recovered/Resolved]
  - Soft tissue necrosis [Recovered/Resolved]
  - Thrombosis [Recovered/Resolved]
